FAERS Safety Report 19092809 (Version 1)
Quarter: 2021Q2

REPORT INFORMATION
  Report Type: Report from Study
  Country: CA (occurrence: CA)
  Receive Date: 20210405
  Receipt Date: 20210405
  Transmission Date: 20210717
  Serious: Yes (Other)
  Sender: FDA-Public Use
  Company Number: CA-TAKEDA-CA201924830

PATIENT
  Age: 46 Year
  Sex: Male
  Weight: 72.56 kg

DRUGS (12)
  1. TEDUGLUTIDE [Suspect]
     Active Substance: TEDUGLUTIDE
     Indication: SHORT-BOWEL SYNDROME
     Dosage: 4.20 MILLIGRAM, 1X/DAY:QD
     Route: 058
     Dates: start: 20190318
  2. FRAGMIN [Concomitant]
     Active Substance: DALTEPARIN SODIUM
     Dosage: UNK
     Route: 050
  3. TEDUGLUTIDE [Suspect]
     Active Substance: TEDUGLUTIDE
     Dosage: 3.9 MILLILITER, QD
     Route: 058
     Dates: start: 20190318
  4. TEDUGLUTIDE [Suspect]
     Active Substance: TEDUGLUTIDE
     Dosage: 3.9 MILLILITER, QD
     Route: 058
     Dates: start: 20190318
  5. TEDUGLUTIDE [Suspect]
     Active Substance: TEDUGLUTIDE
     Dosage: 3.9 MILLILITER, QD
     Route: 058
     Dates: start: 20190318
  6. TEDUGLUTIDE [Suspect]
     Active Substance: TEDUGLUTIDE
     Indication: SHORT-BOWEL SYNDROME
     Dosage: 4.20 MILLIGRAM, 1X/DAY:QD
     Route: 058
     Dates: start: 20190318
  7. TPN [AMINO ACIDS NOS;CARBOHYDRATES NOS;MINERALS NOS;VITAMINS NOS] [Concomitant]
     Active Substance: AMINO ACIDS\CARBOHYDRATES\MINERALS\VITAMINS
     Indication: PRODUCT USED FOR UNKNOWN INDICATION
     Route: 065
  8. TEDUGLUTIDE [Suspect]
     Active Substance: TEDUGLUTIDE
     Indication: SHORT-BOWEL SYNDROME
     Dosage: 4.20 MILLIGRAM, 1X/DAY:QD
     Route: 058
     Dates: start: 20190318
  9. TEDUGLUTIDE [Suspect]
     Active Substance: TEDUGLUTIDE
     Indication: SHORT-BOWEL SYNDROME
     Dosage: 4.20 MILLIGRAM, 1X/DAY:QD
     Route: 058
     Dates: start: 20190318
  10. TEDUGLUTIDE [Suspect]
     Active Substance: TEDUGLUTIDE
     Dosage: 3.9 MILLILITER, QD
     Route: 058
     Dates: start: 20190318
  11. COUMADIN [Concomitant]
     Active Substance: WARFARIN SODIUM
     Indication: PRODUCT USED FOR UNKNOWN INDICATION
     Route: 065
  12. IMODIUM [Concomitant]
     Active Substance: LOPERAMIDE HYDROCHLORIDE
     Indication: PRODUCT USED FOR UNKNOWN INDICATION
     Route: 065

REACTIONS (5)
  - Thrombosis [Not Recovered/Not Resolved]
  - Hypersensitivity [Unknown]
  - Weight decreased [Unknown]
  - Weight fluctuation [Unknown]
  - Ear discomfort [Unknown]

NARRATIVE: CASE EVENT DATE: 202103
